FAERS Safety Report 19707007 (Version 2)
Quarter: 2021Q3

REPORT INFORMATION
  Report Type: Other
  Country: US (occurrence: US)
  Receive Date: 20210817
  Receipt Date: 20210908
  Transmission Date: 20211014
  Serious: Yes (Hospitalization)
  Sender: FDA-Public Use
  Company Number: US-ROCHE-2888091

PATIENT
  Age: 31 Year
  Sex: Male

DRUGS (1)
  1. EVRYSDI [Suspect]
     Active Substance: RISDIPLAM
     Indication: SPINAL MUSCULAR ATROPHY
     Dosage: 60 MG?TAKE 5 MG (6.6 ML) ONCE DAILY AFTER A MEAL AT THE SAME TIME OF THE?DAY.
     Route: 048
     Dates: start: 20201201

REACTIONS (2)
  - Clavicle fracture [Unknown]
  - Fall [Unknown]

NARRATIVE: CASE EVENT DATE: 20210808
